FAERS Safety Report 4694044-2 (Version None)
Quarter: 2005Q2

REPORT INFORMATION
  Report Type: 
  Country: None (occurrence: None)
  Receive Date: 20050616
  Receipt Date: 20050603
  Transmission Date: 20051028
  Serious: Yes (Other)
  Sender: FDA-Public Use
  Company Number: 2005086341

PATIENT
  Sex: Female

DRUGS (1)
  1. CELEBREX [Suspect]
     Indication: ILL-DEFINED DISORDER
     Dosage: 2 IN 1 D

REACTIONS (4)
  - CONDITION AGGRAVATED [None]
  - INTRACARDIAC THROMBUS [None]
  - PAIN [None]
  - ULCER HAEMORRHAGE [None]
